FAERS Safety Report 20038278 (Version 3)
Quarter: 2024Q3

REPORT INFORMATION
  Report Type: Spontaneous
  Country: US (occurrence: US)
  Receive Date: 20211105
  Receipt Date: 20240905
  Transmission Date: 20241017
  Serious: Yes (Other)
  Sender: TEVA
  Company Number: US-TEVA-2021-US-1975631

PATIENT
  Age: 85 Year
  Sex: Female

DRUGS (11)
  1. LOSARTAN [Suspect]
     Active Substance: LOSARTAN\LOSARTAN POTASSIUM
     Indication: Product used for unknown indication
     Route: 065
  2. VALSARTAN [Suspect]
     Active Substance: VALSARTAN
     Indication: Hypertension
     Dosage: HETERO
     Route: 065
     Dates: start: 20160718, end: 20160817
  3. VALSARTAN [Suspect]
     Active Substance: VALSARTAN
     Indication: Hypertension
     Dosage: HETERO
     Route: 065
     Dates: start: 20160419, end: 20160519
  4. VALSARTAN [Suspect]
     Active Substance: VALSARTAN
     Indication: Hypertension
     Dosage: QUALITEST
     Route: 065
     Dates: start: 20160519, end: 20160716
  5. VALSARTAN [Suspect]
     Active Substance: VALSARTAN
     Indication: Hypertension
     Dosage: SOLCO
     Route: 065
     Dates: start: 20160817, end: 20180721
  6. LOSARTAN POTASSIUM [Suspect]
     Active Substance: LOSARTAN POTASSIUM
     Indication: Hypertension
     Dosage: DOSAGE TEXT: LOSARTAN POTASSIUM AUROBINDO
     Route: 065
     Dates: start: 20180719, end: 20180828
  7. LOSARTAN POTASSIUM [Suspect]
     Active Substance: LOSARTAN POTASSIUM
     Indication: Hypertension
     Dosage: AUROBINDO
     Route: 065
     Dates: start: 20180820, end: 20180919
  8. VALSARTAN [Suspect]
     Active Substance: VALSARTAN
     Indication: Hypertension
     Dosage: MYLAN
     Route: 065
     Dates: start: 20150822, end: 20151023
  9. VALSARTAN [Suspect]
     Active Substance: VALSARTAN
     Indication: Hypertension
     Dosage: OHM
     Route: 065
     Dates: start: 20151022, end: 20151121
  10. VALSARTAN [Suspect]
     Active Substance: VALSARTAN
     Indication: Hypertension
     Dosage: SANDOZ
     Route: 065
     Dates: start: 20151123, end: 20151223
  11. VALSARTAN [Suspect]
     Active Substance: VALSARTAN
     Indication: Hypertension
     Dosage: LUPIN
     Route: 065
     Dates: start: 20151219, end: 20160418

REACTIONS (1)
  - Colorectal cancer [Unknown]
